FAERS Safety Report 11919584 (Version 2)
Quarter: 2016Q1

REPORT INFORMATION
  Report Type: Spontaneous
  Country: JP (occurrence: JP)
  Receive Date: 20160115
  Receipt Date: 20160223
  Transmission Date: 20160526
  Serious: Yes (Death, Hospitalization, Other)
  Sender: FDA-Public Use
  Company Number: PHJP2016JP000836

PATIENT
  Age: 30 Year
  Sex: Female

DRUGS (5)
  1. NEORAL [Suspect]
     Active Substance: CYCLOSPORINE
     Indication: LIVER TRANSPLANT
     Dosage: UNK
     Route: 048
  2. CELLCEPT [Concomitant]
     Active Substance: MYCOPHENOLATE MOFETIL\MYCOPHENOLATE MOFETIL HYDROCHLORIDE
     Indication: LIVER TRANSPLANT
     Dosage: UNK
     Route: 065
  3. IMMUNE GLOBULIN [Concomitant]
     Active Substance: HUMAN IMMUNOGLOBULIN G
     Indication: PRODUCT USED FOR UNKNOWN INDICATION
     Dosage: UNK
     Route: 065
  4. SANDIMMUNE [Suspect]
     Active Substance: CYCLOSPORINE
     Indication: LIVER TRANSPLANT
     Dosage: UNK
     Route: 065
  5. CELLCEPT [Concomitant]
     Active Substance: MYCOPHENOLATE MOFETIL\MYCOPHENOLATE MOFETIL HYDROCHLORIDE
     Indication: PATHOGEN RESISTANCE
     Dosage: 250 MG, UNK
     Route: 065

REACTIONS (14)
  - Transplant rejection [Recovering/Resolving]
  - Aspergillus infection [Recovering/Resolving]
  - Complications of transplanted liver [Unknown]
  - Hepatic failure [Unknown]
  - Pulmonary alveolar haemorrhage [Fatal]
  - Abscess [Recovered/Resolved]
  - Pyrexia [Unknown]
  - Intestinal perforation [Not Recovered/Not Resolved]
  - Intra-abdominal haematoma [Recovered/Resolved]
  - Prothrombin time ratio decreased [Unknown]
  - Hepatic function abnormal [Recovering/Resolving]
  - Immunosuppressant drug level decreased [Unknown]
  - Cytomegalovirus infection [Recovering/Resolving]
  - Jaundice [Unknown]
